FAERS Safety Report 9728717 (Version 1)
Quarter: 2013Q4

REPORT INFORMATION
  Report Type: Spontaneous
  Country: US (occurrence: US)
  Receive Date: 20131204
  Receipt Date: 20131204
  Transmission Date: 20140711
  Serious: Yes (Other)
  Sender: FDA-Public Use
  Company Number: US-PFIZER INC-2013346032

PATIENT
  Age: 56 Year
  Sex: Female
  Weight: 62.59 kg

DRUGS (5)
  1. LYRICA [Suspect]
     Indication: FIBROMYALGIA
     Dosage: 150 MG, 2X/DAY
     Dates: end: 2012
  2. LYRICA [Suspect]
     Dosage: 150 MG, 2X/DAY
  3. TYLENOL [Concomitant]
     Indication: OSTEOARTHRITIS
     Dosage: UNK
  4. TYLENOL [Concomitant]
     Indication: SPINAL OSTEOARTHRITIS
  5. HYDROMORPHONE [Concomitant]
     Indication: PAIN
     Dosage: UNK

REACTIONS (4)
  - Shock [Unknown]
  - Activities of daily living impaired [Unknown]
  - Fatigue [Unknown]
  - Vitamin E decreased [Unknown]
